FAERS Safety Report 8144487-X (Version None)
Quarter: 2012Q1

REPORT INFORMATION
  Report Type: 
  Country: None (occurrence: None)
  Receive Date: 20120217
  Receipt Date: 20120207
  Transmission Date: 20120608
  Serious: Yes (Other)
  Sender: FDA-Public Use
  Company Number: US-ROCHE-322022

PATIENT
  Age: 41 Year
  Sex: Female
  Weight: 65.4 kg

DRUGS (5)
  1. HERCEPTIN [Suspect]
     Indication: BREAST CANCER
     Route: 042
  2. DOXORUBICIN HCL [Suspect]
     Indication: BREAST CANCER
     Route: 042
     Dates: start: 20010525, end: 20010817
  3. CYCLOPHOSPHAMIDE [Suspect]
     Indication: BREAST CANCER
     Route: 042
     Dates: start: 20010525, end: 20010817
  4. PACLITAXEL [Suspect]
     Indication: BREAST CANCER
     Route: 042
     Dates: start: 20010817, end: 20011019
  5. HERCEPTIN [Suspect]
     Route: 042
     Dates: start: 20010817, end: 20010817

REACTIONS (1)
  - VENTRICULAR ARRHYTHMIA [None]
